FAERS Safety Report 18526596 (Version 1)
Quarter: 2020Q4

REPORT INFORMATION
  Report Type: Spontaneous
  Country: US (occurrence: US)
  Receive Date: 20201120
  Receipt Date: 20201120
  Transmission Date: 20210114
  Serious: Yes (Hospitalization)
  Sender: FDA-Public Use
  Company Number: US-GLAXOSMITHKLINE-US2020AMR228478

PATIENT
  Sex: Female

DRUGS (1)
  1. ZEJULA [Suspect]
     Active Substance: NIRAPARIB
     Indication: OVARIAN CANCER
     Dosage: 100 MG
     Dates: start: 20201013

REACTIONS (6)
  - Hospitalisation [Unknown]
  - Product dose omission issue [Unknown]
  - Platelet count decreased [Unknown]
  - Gingival bleeding [Unknown]
  - Gingival pain [Unknown]
  - Adverse drug reaction [Unknown]
